FAERS Safety Report 17111643 (Version 2)
Quarter: 2019Q4

REPORT INFORMATION
  Report Type: Spontaneous
  Country: US (occurrence: US)
  Receive Date: 20191204
  Receipt Date: 20191223
  Transmission Date: 20200122
  Serious: No
  Sender: FDA-Public Use
  Company Number: US-TRIS PHARMA, INC.-19US008638

PATIENT

DRUGS (3)
  1. QUILLIVANT XR [Suspect]
     Active Substance: METHYLPHENIDATE HYDROCHLORIDE
     Indication: ATTENTION DEFICIT/HYPERACTIVITY DISORDER
     Dosage: 3 MILLILITER, MORNING BEFORE BREAKFAST
     Route: 048
     Dates: start: 201911, end: 201911
  2. ADDERALL [Concomitant]
     Active Substance: AMPHETAMINE ASPARTATE\AMPHETAMINE SULFATE\DEXTROAMPHETAMINE SACCHARATE\DEXTROAMPHETAMINE SULFATE
     Indication: ATTENTION DEFICIT/HYPERACTIVITY DISORDER
     Route: 048
  3. QUILLIVANT XR [Suspect]
     Active Substance: METHYLPHENIDATE HYDROCHLORIDE
     Dosage: 2 MILLILITER, MORNING AFTER BREAKFAST
     Route: 048
     Dates: start: 201911, end: 201911

REACTIONS (9)
  - Hypotension [Recovered/Resolved]
  - Gait disturbance [Recovered/Resolved]
  - Lethargy [Recovered/Resolved]
  - Presyncope [Recovered/Resolved]
  - Slow speech [Recovered/Resolved]
  - Head discomfort [Recovered/Resolved]
  - Off label use [Unknown]
  - Drooling [Recovered/Resolved]
  - Dizziness [Recovered/Resolved]

NARRATIVE: CASE EVENT DATE: 201911
